FAERS Safety Report 6369934-5 (Version None)
Quarter: 2009Q3

REPORT INFORMATION
  Report Type: 
  Country: None (occurrence: None)
  Receive Date: 20090923
  Receipt Date: 20070918
  Transmission Date: 20100115
  Serious: Yes (Other)
  Sender: FDA-Public Use
  Company Number: US-ASTRAZENECA-2006UW10924

PATIENT
  Age: 11494 Day
  Sex: Male
  Weight: 131.5 kg

DRUGS (19)
  1. SEROQUEL [Suspect]
     Route: 048
     Dates: start: 20011101, end: 20051201
  2. SEROQUEL [Suspect]
     Dosage: 100 TO 300 MG
     Route: 048
     Dates: start: 20020719
  3. ZYPREXA [Concomitant]
     Route: 048
     Dates: start: 20010101, end: 20020101
  4. PAXIL [Concomitant]
     Route: 048
     Dates: start: 20010101, end: 20060101
  5. EFFEXOR [Concomitant]
     Route: 048
     Dates: start: 20030101, end: 20050101
  6. DEPAKOTE [Concomitant]
     Route: 048
     Dates: start: 20010101, end: 20030101
  7. LITHIUM [Concomitant]
     Route: 048
     Dates: start: 20010101, end: 20030101
  8. LISINOPRIL [Concomitant]
     Route: 065
  9. FOSINOPRIL SODIUM [Concomitant]
     Route: 065
  10. ALBUTEROL [Concomitant]
     Route: 048
  11. PREDNISONE TAB [Concomitant]
     Route: 065
  12. GLYBURIDE [Concomitant]
     Route: 048
  13. ENALAPRIL MALEATE [Concomitant]
     Route: 065
  14. ASCORBIC ACID [Concomitant]
     Route: 048
  15. VITAMIN E [Concomitant]
     Route: 065
  16. HYDROCHLOROTHIAZIDE [Concomitant]
     Route: 065
  17. TEGRETOL [Concomitant]
     Route: 065
  18. HYDROXYZINE [Concomitant]
     Route: 048
  19. CELEXA [Concomitant]
     Route: 065

REACTIONS (28)
  - ACUTE STRESS DISORDER [None]
  - ALCOHOL ABUSE [None]
  - ASTHMA [None]
  - BIPOLAR DISORDER [None]
  - BLOOD CHOLESTEROL INCREASED [None]
  - BLOOD TRIGLYCERIDES INCREASED [None]
  - BRONCHITIS [None]
  - COUGH [None]
  - DIABETES MELLITUS [None]
  - DIABETIC KETOACIDOSIS [None]
  - DIARRHOEA [None]
  - DIZZINESS [None]
  - EAR INFECTION [None]
  - HAEMORRHOIDS [None]
  - HEADACHE [None]
  - HYPERTENSION [None]
  - MUSCLE SPASMS [None]
  - MUSCULOSKELETAL CHEST PAIN [None]
  - MYALGIA [None]
  - NAUSEA [None]
  - OBSESSIVE-COMPULSIVE DISORDER [None]
  - OROPHARYNGEAL PAIN [None]
  - PAIN [None]
  - PAIN IN EXTREMITY [None]
  - PYREXIA [None]
  - RHINITIS ALLERGIC [None]
  - SINUSITIS [None]
  - VISION BLURRED [None]
